FAERS Safety Report 9949955 (Version 1)
Quarter: 2014Q1

REPORT INFORMATION
  Report Type: Spontaneous
  Country: None (occurrence: US)
  Receive Date: 20140304
  Receipt Date: 20140304
  Transmission Date: 20141002
  Serious: No
  Sender: FDA-Public Use
  Company Number: US-ABBVIE-13P-163-1065481-00

PATIENT
  Age: 44 Year
  Sex: Male
  Weight: 111.23 kg

DRUGS (6)
  1. HUMIRA [Suspect]
     Indication: PSORIASIS
     Dates: start: 2012
  2. DIOVAN [Concomitant]
     Indication: HYPERTENSION
  3. MEGARED [Concomitant]
     Indication: SUPPLEMENTATION THERAPY
  4. VITAMIN D3 [Concomitant]
     Indication: SUPPLEMENTATION THERAPY
  5. ONE A DAY MENS [Concomitant]
     Indication: SUPPLEMENTATION THERAPY
  6. SUPER B COMPLEX [Concomitant]
     Indication: SUPPLEMENTATION THERAPY

REACTIONS (8)
  - Hypoaesthesia [Not Recovered/Not Resolved]
  - Oropharyngeal pain [Recovered/Resolved]
  - Ligament sprain [Recovered/Resolved]
  - Contusion [Not Recovered/Not Resolved]
  - Blood pressure increased [Not Recovered/Not Resolved]
  - Paraesthesia [Not Recovered/Not Resolved]
  - Chest pain [Not Recovered/Not Resolved]
  - Chest discomfort [Not Recovered/Not Resolved]
